FAERS Safety Report 5374416-3 (Version None)
Quarter: 2007Q2

REPORT INFORMATION
  Report Type: 
  Country: None (occurrence: None)
  Receive Date: 20070629
  Receipt Date: 20070622
  Transmission Date: 20071010
  Serious: Yes (Hospitalization, Other)
  Sender: FDA-Public Use
  Company Number: SE-AVENTIS-200715582GDDC

PATIENT
  Age: 6 Year
  Sex: Male

DRUGS (1)
  1. DESMOPRESSIN [Suspect]
     Indication: DIABETES INSIPIDUS
     Route: 048

REACTIONS (1)
  - MESENTERIC VEIN THROMBOSIS [None]
